FAERS Safety Report 9343685 (Version 1)
Quarter: 2013Q2

REPORT INFORMATION
  Report Type: Spontaneous
  Country: GB (occurrence: None)
  Receive Date: 20130610
  Receipt Date: 20130610
  Transmission Date: 20140414
  Serious: Yes (Other)
  Sender: FDA-Public Use
  Company Number: HRA-CDB20130074

PATIENT
  Age: 25 Year
  Sex: Female
  Weight: 88 kg

DRUGS (1)
  1. ELLAONE [Suspect]
     Indication: CONTRACEPTION
     Dosage: (30 MG, 1 IN 1 D)
     Route: 048
     Dates: start: 20130408, end: 20130408

REACTIONS (2)
  - Unintended pregnancy [None]
  - Exposure during pregnancy [None]
